FAERS Safety Report 9254600 (Version 1)
Quarter: 2013Q1

REPORT INFORMATION
  Report Type: Spontaneous
  Country: US (occurrence: None)
  Receive Date: 20121203
  Receipt Date: 20121203
  Transmission Date: 20140127
  Serious: Yes (Hospitalization, Other)
  Sender: FDA-Public Use
  Company Number: 2012SP017341

PATIENT
  Age: 19 Year
  Sex: Female
  Weight: 127 kg

DRUGS (1)
  1. NUVARING [Suspect]
     Dates: start: 20051201, end: 201005

REACTIONS (21)
  - Pulmonary embolism [None]
  - Deep vein thrombosis [None]
  - Tonsillectomy [None]
  - Anxiety [None]
  - Pain [None]
  - Pulmonary valve incompetence [None]
  - Tricuspid valve incompetence [None]
  - Mitral valve incompetence [None]
  - Headache [None]
  - Acute tonsillitis [None]
  - Sialoadenitis [None]
  - Major depression [None]
  - Arthralgia [None]
  - Vomiting [None]
  - Nausea [None]
  - Adenoidectomy [None]
  - Tonsillar hypertrophy [None]
  - Upper airway obstruction [None]
  - Upper respiratory tract infection [None]
  - Sinusitis [None]
  - Pharyngitis [None]
